FAERS Safety Report 5235759-7 (Version None)
Quarter: 2007Q1

REPORT INFORMATION
  Report Type: 
  Country: None (occurrence: None)
  Receive Date: 20061208
  Receipt Date: 20051202
  Transmission Date: 20070707
  Serious: Yes (Other)
  Sender: FDA-Public Use
  Company Number: 2005UW18267

PATIENT
  Age: 44 Year
  Sex: Female

DRUGS (6)
  1. TOPROL-XL [Suspect]
     Dosage: 50 MG PO
     Route: 048
  2. SEROQUEL [Suspect]
     Dosage: 50 MG BID PO
     Route: 048
  3. CRESTOR [Suspect]
     Dosage: 40 MG PO
     Route: 048
  4. ZOLOFT [Concomitant]
  5. ACE INHIBITOR [Concomitant]
  6. DIABETIC MEDICATIONS [Concomitant]

REACTIONS (4)
  - DIZZINESS [None]
  - FATIGUE [None]
  - HYPOTENSION [None]
  - NAUSEA [None]
